FAERS Safety Report 19785144 (Version 2)
Quarter: 2022Q1

REPORT INFORMATION
  Report Type: Spontaneous
  Country: US (occurrence: None)
  Receive Date: 20210903
  Receipt Date: 20220311
  Transmission Date: 20220423
  Serious: Yes (Other)
  Sender: FDA-Public Use
  Company Number: 2021A705322

PATIENT
  Age: 852 Month
  Sex: Male
  Weight: 81.6 kg

DRUGS (24)
  1. PRILOSEC OTC [Suspect]
     Active Substance: OMEPRAZOLE MAGNESIUM
     Indication: Gastrooesophageal reflux disease
     Dosage: FOR VARIOUS DATES AND YEARS
     Route: 048
  2. PRILOSEC OTC [Suspect]
     Active Substance: OMEPRAZOLE MAGNESIUM
     Indication: Gastrooesophageal reflux disease
     Route: 048
     Dates: start: 2006, end: 2017
  3. PRILOSEC [Suspect]
     Active Substance: OMEPRAZOLE MAGNESIUM
     Indication: Gastrooesophageal reflux disease
     Dosage: GENERIC
     Route: 065
     Dates: start: 2006, end: 2017
  4. LANSOPRAZOLE [Suspect]
     Active Substance: LANSOPRAZOLE
     Indication: Gastrooesophageal reflux disease
     Dosage: GENERIC
     Route: 065
     Dates: start: 2017
  5. ATORVASTATIN [Concomitant]
     Active Substance: ATORVASTATIN
     Indication: Blood cholesterol abnormal
     Route: 065
     Dates: start: 202103
  6. ALBUTEROL [Concomitant]
     Active Substance: ALBUTEROL
     Indication: Hyperventilation
     Route: 065
     Dates: start: 202008
  7. AZITHROMYCIN [Concomitant]
     Active Substance: AZITHROMYCIN
     Indication: Infection
  8. METFORMIN [Concomitant]
     Active Substance: METFORMIN HYDROCHLORIDE
     Indication: Diabetes mellitus
     Route: 065
     Dates: start: 200602
  9. BRILINTA [Concomitant]
     Active Substance: TICAGRELOR
     Indication: Cardiac disorder
     Route: 065
     Dates: start: 202003, end: 202103
  10. ASPIRIN [Concomitant]
     Active Substance: ASPIRIN
     Indication: Pain
  11. FAMOTIDINE [Concomitant]
     Active Substance: FAMOTIDINE
     Route: 065
     Dates: start: 2019
  12. PEPCID AC [Concomitant]
     Active Substance: FAMOTIDINE
     Route: 065
     Dates: start: 2019, end: 2021
  13. DOXAZOSIN [Concomitant]
     Active Substance: DOXAZOSIN MESYLATE
  14. FINASTERIDE [Concomitant]
     Active Substance: FINASTERIDE
  15. LOSARTAN [Concomitant]
     Active Substance: LOSARTAN
  16. ZOLPIDEM [Concomitant]
     Active Substance: ZOLPIDEM TARTRATE
  17. AFLURIA NOS [Concomitant]
     Active Substance: INFLUENZA VIRUS VACCINE TRIVALENT TYPE A+B AFLURIA
  18. ADVAIR HFA [Concomitant]
     Active Substance: FLUTICASONE PROPIONATE\SALMETEROL XINAFOATE
  19. ATROVENT [Concomitant]
     Active Substance: IPRATROPIUM BROMIDE
  20. TRIAMTERENE [Concomitant]
     Active Substance: TRIAMTERENE
  21. VESICARE [Concomitant]
     Active Substance: SOLIFENACIN SUCCINATE
  22. METRONIDAZOLE [Concomitant]
     Active Substance: METRONIDAZOLE
  23. GLIPIZIDE [Concomitant]
     Active Substance: GLIPIZIDE
  24. FLUARIX NOS [Concomitant]
     Active Substance: INFLUENZA VIRUS VACCINE

REACTIONS (3)
  - Chronic kidney disease [Not Recovered/Not Resolved]
  - Renal failure [Unknown]
  - Rebound acid hypersecretion [Unknown]

NARRATIVE: CASE EVENT DATE: 20170501
